FAERS Safety Report 20478174 (Version 2)
Quarter: 2022Q1

REPORT INFORMATION
  Report Type: Spontaneous
  Country: IL (occurrence: None)
  Receive Date: 20220216
  Receipt Date: 20220221
  Transmission Date: 20220423
  Serious: No
  Sender: FDA-Public Use
  Company Number: IL-ROCHE-3024903

PATIENT
  Age: 85 Year
  Sex: Male

DRUGS (1)
  1. OCREVUS [Suspect]
     Active Substance: OCRELIZUMAB
     Indication: Product used for unknown indication
     Dosage: LAST INFUSION BEFORE INFECTION /NOV/2020
     Route: 065

REACTIONS (1)
  - Asymptomatic COVID-19 [Recovered/Resolved]

NARRATIVE: CASE EVENT DATE: 20210201
